FAERS Safety Report 5484199-4 (Version None)
Quarter: 2007Q4

REPORT INFORMATION
  Report Type: 
  Country: None (occurrence: None)
  Receive Date: 20071009
  Receipt Date: 20071009
  Transmission Date: 20080405
  Serious: No
  Sender: FDA-Public Use
  Company Number: None

PATIENT
  Age: 3 Month
  Sex: Male
  Weight: 4.536 kg

DRUGS (1)
  1. ELIDEL [Suspect]
     Indication: DERMATITIS ATOPIC
     Dosage: UNLIMITED OFTEN CUTANEOUS
     Route: 003
     Dates: start: 20021231, end: 20041111

REACTIONS (8)
  - FOOD ALLERGY [None]
  - GROWTH RETARDATION [None]
  - ILL-DEFINED DISORDER [None]
  - LEARNING DISORDER [None]
  - MALAISE [None]
  - PHOTOSENSITIVITY REACTION [None]
  - VOMITING [None]
  - WEIGHT DECREASED [None]
